FAERS Safety Report 7234574-2 (Version None)
Quarter: 2011Q1

REPORT INFORMATION
  Report Type: 
  Country: None (occurrence: None)
  Receive Date: 20110120
  Receipt Date: 20110113
  Transmission Date: 20110831
  Serious: Yes (Hospitalization, Other)
  Sender: FDA-Public Use
  Company Number: US-ASTRAZENECA-2006UW03654

PATIENT
  Age: 470 Month
  Sex: Male
  Weight: 145.1 kg

DRUGS (22)
  1. ZANTAC [Concomitant]
     Dates: start: 20001220
  2. SEROQUEL [Suspect]
     Dosage: 25 MG 2 AT BID
     Route: 048
     Dates: start: 20000913
  3. LOTENSIN [Concomitant]
     Dates: start: 20000913
  4. VERAPAMIL [Concomitant]
     Route: 048
     Dates: start: 20000913
  5. VIOXX [Concomitant]
     Dates: start: 20000913
  6. IBUPROFEN [Concomitant]
     Dosage: 600 MG Q8H PRN
     Dates: start: 20000913
  7. SEROQUEL [Suspect]
     Dosage: 25 MG - 200 MG
     Route: 048
     Dates: start: 20001201, end: 20040601
  8. BUSPAR [Concomitant]
     Route: 048
     Dates: start: 20000913
  9. SEROQUEL [Suspect]
     Indication: MAJOR DEPRESSION
     Dosage: 25 MG 200 MG
     Route: 048
     Dates: start: 20000701, end: 20060211
  10. GEODON [Concomitant]
     Dosage: 20 MG DAILY
     Dates: start: 20060609
  11. XANAX [Concomitant]
     Route: 048
     Dates: start: 20001212
  12. LOZOL [Concomitant]
     Route: 048
     Dates: start: 20001220
  13. SEROQUEL [Suspect]
     Indication: ANXIETY
     Dosage: 25 MG 200 MG
     Route: 048
     Dates: start: 20000701, end: 20060211
  14. SEROQUEL [Suspect]
     Dosage: 25 MG 2 AT BID
     Route: 048
     Dates: start: 20000913
  15. GEODON [Concomitant]
     Dosage: 20-60 MG DAILY
     Dates: start: 20060101
  16. HYDROCHLOROTHIAZIDE [Concomitant]
     Route: 048
     Dates: start: 20000913, end: 20001208
  17. PAXIL [Concomitant]
     Route: 048
     Dates: start: 20000913
  18. HUMULIN R [Concomitant]
     Dosage: 70/30, 35 UNITS QAM AND 20 UNITS QPM
     Route: 058
     Dates: start: 20001220
  19. SEROQUEL [Suspect]
     Dosage: 25 MG - 200 MG
     Route: 048
     Dates: start: 20001201, end: 20040601
  20. ABILIFY [Concomitant]
     Dates: start: 20030105
  21. LOTENSIN [Concomitant]
     Route: 048
     Dates: start: 20001208
  22. XANAX [Concomitant]
     Dates: start: 20000913

REACTIONS (12)
  - DIABETIC KETOACIDOSIS [None]
  - DIABETES MELLITUS [None]
  - GLAUCOMA [None]
  - DIABETIC NEPHROPATHY [None]
  - HYPOGLYCAEMIA [None]
  - TYPE 1 DIABETES MELLITUS [None]
  - HYPERGLYCAEMIA [None]
  - BLOOD CHOLESTEROL INCREASED [None]
  - BLOOD TRIGLYCERIDES INCREASED [None]
  - OBESITY [None]
  - BLOOD GLUCOSE ABNORMAL [None]
  - HYPERLIPIDAEMIA [None]
